FAERS Safety Report 9479715 (Version 1)
Quarter: 2013Q3

REPORT INFORMATION
  Report Type: Spontaneous
  Country: US (occurrence: US)
  Receive Date: 20130828
  Receipt Date: 20130828
  Transmission Date: 20140515
  Serious: Yes (Hospitalization)
  Sender: FDA-Public Use
  Company Number: US-AMGEN-KDL041737

PATIENT
  Age: 64 Year
  Sex: Female

DRUGS (3)
  1. ENBREL [Suspect]
     Indication: RHEUMATOID ARTHRITIS
     Dosage: 25 MG, 2 TIMES/WK
     Route: 065
     Dates: start: 20030220
  2. METHOTREXATE [Concomitant]
     Dosage: .4 ML, UNK
     Dates: start: 199806
  3. HYDROXYCHLOROQUINE PHOSPHATE [Concomitant]
     Dosage: 200 MG, BID
     Dates: start: 19980601

REACTIONS (3)
  - Stent placement [Unknown]
  - Chest pain [Unknown]
  - Contusion [Unknown]
